FAERS Safety Report 9913852 (Version 3)
Quarter: 2014Q3

REPORT INFORMATION
  Report Type: Spontaneous
  Country: US (occurrence: US)
  Receive Date: 20140220
  Receipt Date: 20140703
  Transmission Date: 20150326
  Serious: Yes (Hospitalization, Other)
  Sender: FDA-Public Use
  Company Number: US-BAYER-2014-026384

PATIENT
  Age: 28 Year
  Sex: Female
  Weight: 63.49 kg

DRUGS (6)
  1. MIRENA [Suspect]
     Active Substance: LEVONORGESTREL
     Indication: CONTRACEPTION
     Dosage: 20 MCG/24HR, CONT
     Route: 015
     Dates: start: 20111028, end: 20120130
  2. PRENATAL VITAMINS [VIT C,VIT H,MIN NOS,VIT PP,RETINOL,VIT E,VIT B [Concomitant]
     Dosage: 60-1 MG DAILY
     Route: 048
  3. PHENERGAN [Concomitant]
     Active Substance: PROMETHAZINE HYDROCHLORIDE
     Indication: NAUSEA
     Dosage: 25 MG, EVERY 6 HOURS AS NEEDED
     Route: 048
  4. IRON [Concomitant]
     Active Substance: IRON
     Dosage: 25 MG, UNK
     Route: 048
  5. FLU [Concomitant]
     Active Substance: INFLUENZA VIRUS VACCINE
  6. IBUPROFEN. [Concomitant]
     Active Substance: IBUPROFEN

REACTIONS (14)
  - Pelvic pain [None]
  - Anxiety [None]
  - Abdominal pain [None]
  - Medical device discomfort [None]
  - Fear [None]
  - Injury [None]
  - Pain [None]
  - Genital haemorrhage [None]
  - Emotional distress [None]
  - Device issue [None]
  - Uterine perforation [None]
  - Abdominal pain lower [None]
  - Internal injury [None]
  - Depression [None]

NARRATIVE: CASE EVENT DATE: 20111104
